FAERS Safety Report 4673523-8 (Version None)
Quarter: 2005Q2

REPORT INFORMATION
  Report Type: 
  Country: None (occurrence: None)
  Receive Date: 20050523
  Receipt Date: 20050505
  Transmission Date: 20051028
  Serious: Yes (Hospitalization)
  Sender: FDA-Public Use
  Company Number: 2005000897

PATIENT
  Age: 55 Year
  Sex: Female

DRUGS (3)
  1. TARCEVA [Suspect]
     Indication: NON-SMALL CELL LUNG CANCER
     Dosage: 150MG (QD), ORAL
     Route: 048
     Dates: start: 20050111
  2. MULTI-VITAMIN [Concomitant]
  3. ADVIL [Concomitant]

REACTIONS (3)
  - ARRHYTHMIA [None]
  - CHEST DISCOMFORT [None]
  - CHEST PAIN [None]
